FAERS Safety Report 7425339-7 (Version None)
Quarter: 2011Q2

REPORT INFORMATION
  Report Type: 
  Country: None (occurrence: None)
  Receive Date: 20110413
  Receipt Date: 20110406
  Transmission Date: 20111010
  Serious: Yes (Other)
  Sender: FDA-Public Use
  Company Number: 2011SP015587

PATIENT
  Age: 24 Year
  Sex: Female
  Weight: 49.8957 kg

DRUGS (5)
  1. ADDEROL [Concomitant]
  2. PRILOSEC [Concomitant]
  3. AMBIEN [Concomitant]
  4. VICODIN [Concomitant]
  5. IMPLANON [Suspect]
     Indication: CONTRACEPTION
     Dates: start: 20080228

REACTIONS (7)
  - MUSCLE SPASMS [None]
  - AGGRESSION [None]
  - THROMBOSIS [None]
  - MENSTRUATION IRREGULAR [None]
  - AFFECTIVE DISORDER [None]
  - MENORRHAGIA [None]
  - MIGRAINE [None]
